FAERS Safety Report 4272488-0 (Version None)
Quarter: 2004Q1

REPORT INFORMATION
  Report Type: 
  Country: None (occurrence: None)
  Receive Date: 20040115
  Receipt Date: 20040108
  Transmission Date: 20041129
  Serious: Yes (Hospitalization)
  Sender: FDA-Public Use
  Company Number: WAES 0401GBR00064

PATIENT
  Age: 68 Year
  Sex: Female

DRUGS (2)
  1. [THERAPY UNSPECIFIED] [Concomitant]
     Route: 048
  2. SINGULAIR [Suspect]
     Route: 048

REACTIONS (1)
  - PERITONITIS BACTERIAL [None]
